FAERS Safety Report 9777012 (Version 2)
Quarter: 2013Q4

REPORT INFORMATION
  Report Type: Report from Study
  Country: US (occurrence: US)
  Receive Date: 20131221
  Receipt Date: 20131221
  Transmission Date: 20140711
  Serious: Yes (Hospitalization)
  Sender: FDA-Public Use
  Company Number: US-ROCHE-1229807

PATIENT
  Age: 55 Year
  Sex: Female
  Weight: 84.9 kg

DRUGS (5)
  1. BEVACIZUMAB [Suspect]
     Indication: COLORECTAL CANCER METASTATIC
     Dosage: LAST DOSE PRIOR TO EVENT:16/MAY/2013
     Route: 042
     Dates: start: 20130516
  2. FOLINIC ACID [Suspect]
     Indication: COLORECTAL CANCER METASTATIC
     Dosage: LIQUID.  LAST DOSE PRIOR TO THE EVENT: 16/MAY/2013
     Route: 042
     Dates: start: 20130516
  3. FLUOROURACIL [Suspect]
     Indication: COLORECTAL CANCER METASTATIC
     Dosage: THE DATE OF THE LAST DOSE PRIOR TO SAE:18/MAY/2013
     Route: 042
     Dates: start: 20130516
  4. OXALIPLATIN [Suspect]
     Indication: COLORECTAL CANCER METASTATIC
     Dosage: LAST DOSE ON 16/MAY/2013
     Route: 042
     Dates: start: 20130516
  5. IRINOTECAN [Suspect]
     Indication: COLORECTAL CANCER METASTATIC
     Dosage: LAST DOSE ON 16/MAY/2013
     Route: 042
     Dates: start: 20130516

REACTIONS (2)
  - Pyrexia [Recovered/Resolved]
  - Diarrhoea [Recovered/Resolved]
